FAERS Safety Report 8411406 (Version 2)
Quarter: 2014Q2

REPORT INFORMATION
  Report Type: Report from Study
  Country: CA (occurrence: CA)
  Receive Date: 20120217
  Receipt Date: 20140424
  Transmission Date: 20141212
  Serious: Yes (Other)
  Sender: FDA-Public Use
  Company Number: CA-UCBSA-051143

PATIENT
  Age: 55 Year
  Sex: Female
  Weight: 83 kg

DRUGS (12)
  1. CIMZIA [Suspect]
     Indication: RHEUMATOID ARTHRITIS
     Route: 058
     Dates: start: 20110224
  2. FOLIC ACID [Concomitant]
     Dosage: UNKNOWN DOSE
  3. MTX [Concomitant]
     Indication: RHEUMATOID ARTHRITIS
     Route: 048
     Dates: start: 1995
  4. PREDNISONE [Concomitant]
     Indication: RHEUMATOID ARTHRITIS
     Dosage: ROUTE : IV
     Route: 042
     Dates: start: 1995
  5. PLAQUENIL [Concomitant]
     Indication: RHEUMATOID ARTHRITIS
     Route: 048
     Dates: start: 1995
  6. ELTROXIN [Concomitant]
     Dosage: UNKNOWN DOSE
  7. HRT [Concomitant]
     Dosage: UNKNOWN DOSE
  8. PARIET [Concomitant]
     Dosage: UNKNOWN DOSE
  9. NAPROSYN [Concomitant]
     Dosage: UNKNOWN DOSE
  10. TRAMADOL [Concomitant]
     Dosage: UNKNOWN DOSE
  11. TYLENOL [Concomitant]
     Dosage: UNKNOWN DOSE
  12. ZOPICLONE [Concomitant]
     Dosage: UNKNOWN DOSE

REACTIONS (2)
  - Smear cervix abnormal [Unknown]
  - Post procedural infection [Recovered/Resolved]
